FAERS Safety Report 7240301-5 (Version None)
Quarter: 2011Q1

REPORT INFORMATION
  Report Type: 
  Country: None (occurrence: None)
  Receive Date: 20110124
  Receipt Date: 20110119
  Transmission Date: 20110831
  Serious: Yes (Death, Other)
  Sender: FDA-Public Use
  Company Number: PHHY2011JP04514

PATIENT
  Age: 85 Year
  Sex: Female

DRUGS (1)
  1. VOLTAREN [Suspect]
     Indication: PAIN
     Dosage: 2 SUPPOSITORIES DAILY
     Route: 054
     Dates: start: 20100301

REACTIONS (7)
  - PLATELET COUNT DECREASED [None]
  - DEPRESSION [None]
  - NAUSEA [None]
  - DECREASED APPETITE [None]
  - PYREXIA [None]
  - LYMPHOMA [None]
  - PAIN [None]
